FAERS Safety Report 10150573 (Version 2)
Quarter: 2014Q2

REPORT INFORMATION
  Report Type: Spontaneous
  Country: JP (occurrence: JP)
  Receive Date: 20140502
  Receipt Date: 20140502
  Transmission Date: 20141212
  Serious: Yes (Life-Threatening, Hospitalization)
  Sender: FDA-Public Use
  Company Number: JP-SA-2012-05619

PATIENT
  Age: 85 Year
  Sex: Female
  Weight: 46 kg

DRUGS (8)
  1. BCG (CONNAUGHT) IT [Suspect]
     Indication: BLADDER CANCER
     Route: 043
     Dates: start: 20120508, end: 20120522
  2. CRAVIT [Concomitant]
     Route: 048
  3. DICLOFENAC SODIUM [Concomitant]
     Route: 048
  4. ISCOTIN [Concomitant]
     Route: 048
  5. RIFADIN [Concomitant]
     Route: 048
  6. MICARDIS [Concomitant]
     Route: 065
  7. ONEALFA [Concomitant]
     Route: 048
  8. AMINOLEVULINIC ACID [Concomitant]
     Dosage: START THERAPY DATE TEXT : NOT REPORTED?DAILY DOSE TEXT : NOT REPORTED
     Route: 065

REACTIONS (8)
  - Hypersensitivity [Recovering/Resolving]
  - Interstitial lung disease [Recovering/Resolving]
  - Pyrexia [Recovering/Resolving]
  - Dyspnoea [Recovering/Resolving]
  - Incorrect route of drug administration [Unknown]
  - Off label use [Unknown]
  - Pleural effusion [Recovering/Resolving]
  - Hypoxia [Recovering/Resolving]
